FAERS Safety Report 4808313-6 (Version None)
Quarter: 2005Q4

REPORT INFORMATION
  Report Type: 
  Country: None (occurrence: None)
  Receive Date: 20051021
  Receipt Date: 20041019
  Transmission Date: 20060501
  Serious: Yes (Hospitalization)
  Sender: FDA-Public Use
  Company Number: EWC040840131

PATIENT
  Sex: Male
  Weight: 87 kg

DRUGS (3)
  1. OLANZAPINE [Suspect]
     Indication: DEPRESSION
     Dosage: 1600 MG/1
     Dates: start: 20040717, end: 20040717
  2. OLANZAPINE [Suspect]
     Indication: SCHIZOAFFECTIVE DISORDER
     Dosage: 1600 MG/1
     Dates: start: 20040717, end: 20040717
  3. AKINETON [Concomitant]

REACTIONS (4)
  - INTENTIONAL DRUG MISUSE [None]
  - LOSS OF CONSCIOUSNESS [None]
  - PULMONARY EMBOLISM [None]
  - SUICIDE ATTEMPT [None]
